FAERS Safety Report 18138304 (Version 2)
Quarter: 2020Q3

REPORT INFORMATION
  Report Type: Spontaneous
  Country: US (occurrence: US)
  Receive Date: 20200812
  Receipt Date: 20200819
  Transmission Date: 20201103
  Serious: Yes (Hospitalization, Other)
  Sender: FDA-Public Use
  Company Number: US-CIPLA LTD.-2020US05318

PATIENT

DRUGS (15)
  1. GABAPENTIN. [Suspect]
     Active Substance: GABAPENTIN
     Indication: BEHAVIOUR DISORDER
  2. ZOLPIDEM TARTRATE. [Suspect]
     Active Substance: ZOLPIDEM TARTRATE
     Indication: BEHAVIOUR DISORDER
  3. IMIPRAMINE [Suspect]
     Active Substance: IMIPRAMINE
     Indication: NERVOUS SYSTEM DISORDER
     Dosage: UNK
     Route: 065
  4. IMIPRAMINE [Suspect]
     Active Substance: IMIPRAMINE
     Indication: BEHAVIOUR DISORDER
  5. ZOLPIDEM TARTRATE. [Suspect]
     Active Substance: ZOLPIDEM TARTRATE
     Indication: NERVOUS SYSTEM DISORDER
     Dosage: UNK
     Route: 065
  6. CLARITHROMYCIN. [Suspect]
     Active Substance: CLARITHROMYCIN
     Indication: PRODUCT USED FOR UNKNOWN INDICATION
     Dosage: UNK
     Route: 065
  7. LAMOTRIGINE. [Suspect]
     Active Substance: LAMOTRIGINE
     Indication: NERVOUS SYSTEM DISORDER
     Dosage: UNK
     Route: 065
  8. MODAFINIL. [Suspect]
     Active Substance: MODAFINIL
     Indication: NERVOUS SYSTEM DISORDER
     Dosage: UNK
     Route: 065
  9. LAMOTRIGINE. [Suspect]
     Active Substance: LAMOTRIGINE
     Indication: BEHAVIOUR DISORDER
  10. LEVETIRACETAM. [Suspect]
     Active Substance: LEVETIRACETAM
     Indication: NERVOUS SYSTEM DISORDER
     Dosage: UNK
     Route: 065
  11. LEVETIRACETAM. [Suspect]
     Active Substance: LEVETIRACETAM
     Indication: BEHAVIOUR DISORDER
  12. OLANZAPINE. [Suspect]
     Active Substance: OLANZAPINE
     Indication: NERVOUS SYSTEM DISORDER
     Dosage: UNK
     Route: 065
  13. OLANZAPINE. [Suspect]
     Active Substance: OLANZAPINE
     Indication: BEHAVIOUR DISORDER
  14. MODAFINIL. [Suspect]
     Active Substance: MODAFINIL
     Indication: BEHAVIOUR DISORDER
  15. GABAPENTIN. [Suspect]
     Active Substance: GABAPENTIN
     Indication: NERVOUS SYSTEM DISORDER
     Dosage: UNK
     Route: 065

REACTIONS (10)
  - Mental impairment [Recovering/Resolving]
  - Muscle rigidity [Recovering/Resolving]
  - Gait disturbance [Recovering/Resolving]
  - Fall [Recovering/Resolving]
  - Cognitive disorder [Recovering/Resolving]
  - Drug interaction [Unknown]
  - Trismus [Recovering/Resolving]
  - Delusion [Recovering/Resolving]
  - Memory impairment [Recovering/Resolving]
  - Drug-disease interaction [Unknown]
